FAERS Safety Report 5773940-9 (Version None)
Quarter: 2008Q2

REPORT INFORMATION
  Report Type: 
  Country: None (occurrence: None)
  Receive Date: 20080601
  Receipt Date: 20080114
  Transmission Date: 20081010
  Serious: No
  Sender: FDA-Public Use
  Company Number: US200710000548

PATIENT
  Age: 49 Year
  Sex: Female
  Weight: 92.1 kg

DRUGS (5)
  1. BYETTA [Suspect]
     Dosage: 5 UG, 2/D
     Dates: start: 20070701, end: 20070901
  2. METFORMIN HCL [Concomitant]
  3. LIPITOR [Concomitant]
  4. ALTACE [Concomitant]
  5. TOPROL-XL [Concomitant]

REACTIONS (2)
  - NAIL DISORDER [None]
  - ONYCHOMADESIS [None]
